FAERS Safety Report 4544295-2 (Version None)
Quarter: 2004Q4

REPORT INFORMATION
  Report Type: 
  Country: None (occurrence: None)
  Receive Date: 20041230
  Receipt Date: 20041220
  Transmission Date: 20050328
  Serious: Yes (Life-Threatening)
  Sender: FDA-Public Use
  Company Number: DSA_25537_2004

PATIENT
  Age: 77 Year
  Sex: Male

DRUGS (4)
  1. ENALAPRIL MALEATE [Suspect]
     Indication: CARDIOMYOPATHY
     Dosage: 20 MG QD PO
     Route: 048
     Dates: start: 20020401, end: 20040531
  2. LASIX [Suspect]
     Indication: CARDIOMYOPATHY
     Dosage: 25 MG Q DAY PO
     Route: 048
     Dates: start: 20020401, end: 20040531
  3. LANOXIN [Suspect]
     Indication: CARDIOMYOPATHY
     Dosage: 0.25 MG Q DAY PO
     Route: 048
     Dates: start: 20020401, end: 20040531
  4. ZYLORIC ^FAES^ [Suspect]
     Indication: GOUT
     Dosage: 100 MG Q DAY PO
     Route: 048
     Dates: start: 20031201, end: 20040531

REACTIONS (1)
  - PANCYTOPENIA [None]
